FAERS Safety Report 5484537-2 (Version None)
Quarter: 2007Q4

REPORT INFORMATION
  Report Type: 
  Country: None (occurrence: None)
  Receive Date: 20071012
  Receipt Date: 20071002
  Transmission Date: 20080405
  Serious: Yes (Hospitalization)
  Sender: FDA-Public Use
  Company Number: DE-PFIZER INC-2007060922

PATIENT
  Age: 55 Year
  Sex: Female

DRUGS (1)
  1. CABERGOLINE [Suspect]
     Indication: PARKINSON'S DISEASE
     Dosage: DAILY DOSE:4MG
     Route: 048
     Dates: start: 20070601, end: 20070101

REACTIONS (2)
  - CONDITION AGGRAVATED [None]
  - DYSPNOEA EXERTIONAL [None]
